FAERS Safety Report 11078322 (Version 1)
Quarter: 2015Q2

REPORT INFORMATION
  Report Type: Report from Study
  Country: DE (occurrence: DE)
  Receive Date: 20150430
  Receipt Date: 20150430
  Transmission Date: 20150821
  Serious: Yes (Death, Other)
  Sender: FDA-Public Use
  Company Number: DE-BAYER-2015-170473

PATIENT
  Age: 43 Year
  Sex: Female

DRUGS (14)
  1. COCAINE [Suspect]
     Active Substance: COCAINE
  2. HYDROXYZINE [Suspect]
     Active Substance: HYDROXYZINE\HYDROXYZINE HYDROCHLORIDE
  3. METHADONE [Suspect]
     Active Substance: METHADONE HYDROCHLORIDE
  4. NAPROXEN. [Suspect]
     Active Substance: NAPROXEN
  5. THEOPHYLLINE [Suspect]
     Active Substance: THEOPHYLLINE ANHYDROUS
  6. CAFFEINE. [Suspect]
     Active Substance: CAFFEINE
  7. ETHANOL [Suspect]
     Active Substance: ALCOHOL
  8. CODEINE [Suspect]
     Active Substance: CODEINE
  9. THEOBROMINE [Suspect]
     Active Substance: THEOBROMINE
  10. DIAZEPAM. [Suspect]
     Active Substance: DIAZEPAM
  11. LEVAMISOLE [Suspect]
     Active Substance: LEVAMISOLE
  12. NORDAZEPAM [Suspect]
     Active Substance: NORDAZEPAM
  13. PARACETAMOL [Suspect]
     Active Substance: ACETAMINOPHEN
  14. MORPHINE [Suspect]
     Active Substance: MORPHINE

REACTIONS (2)
  - Drug abuse [None]
  - Toxicity to various agents [Fatal]
